FAERS Safety Report 7004798-8 (Version None)
Quarter: 2010Q3

REPORT INFORMATION
  Report Type: 
  Country: None (occurrence: None)
  Receive Date: 20100921
  Receipt Date: 20100824
  Transmission Date: 20110219
  Serious: Yes (Other)
  Sender: FDA-Public Use
  Company Number: US-ASTRAZENECA-2010SE39824

PATIENT
  Sex: Female
  Weight: 71.7 kg

DRUGS (8)
  1. SEROQUEL [Suspect]
     Dosage: 50 MG-200 MG
     Route: 048
     Dates: start: 20040915
  2. ZOLOFT [Concomitant]
     Dosage: 100 MG-150 MG
     Route: 048
     Dates: start: 20040915
  3. ESTRADIOL [Concomitant]
     Dosage: 2 MG 1/2 TABLET A DAY
     Dates: start: 20070209
  4. AVANDIA [Concomitant]
     Dosage: 4 MG 1/2 TABLET IN THE MORNING
     Dates: start: 20070209
  5. AMITRIPTYLINE HCL [Concomitant]
     Dates: start: 20070209
  6. GLIPIZIDE [Concomitant]
     Dates: start: 20070209
  7. LAMICTAL [Concomitant]
     Dosage: 50 MG-200 MG
     Route: 048
     Dates: start: 20050915
  8. LOVASTATIN [Concomitant]
     Dosage: 20 MG A HALF A TABLET DAILY
     Dates: start: 20070216

REACTIONS (7)
  - DIABETES MELLITUS INADEQUATE CONTROL [None]
  - HYPERLIPIDAEMIA [None]
  - MENOPAUSAL SYMPTOMS [None]
  - NEUROPATHY PERIPHERAL [None]
  - PLANTAR FASCIITIS [None]
  - RESTLESS LEGS SYNDROME [None]
  - WEIGHT DECREASED [None]
